FAERS Safety Report 9527213 (Version 1)
Quarter: 2013Q3

REPORT INFORMATION
  Report Type: Spontaneous
  Country: US (occurrence: US)
  Receive Date: 20130917
  Receipt Date: 20130917
  Transmission Date: 20140515
  Serious: Yes (Other)
  Sender: FDA-Public Use
  Company Number: US-009507513-1309USA005543

PATIENT
  Age: 64 Year
  Sex: Female
  Weight: 108.84 kg

DRUGS (2)
  1. ZOCOR [Suspect]
     Indication: BLOOD CHOLESTEROL INCREASED
     Route: 048
  2. NEURONTIN [Concomitant]
     Indication: NEURALGIA
     Dosage: 300 MG, TID
     Dates: start: 20130807

REACTIONS (3)
  - Rhabdomyolysis [Unknown]
  - Muscle spasms [Unknown]
  - Muscle spasms [Unknown]
